FAERS Safety Report 7908448-5 (Version None)
Quarter: 2011Q4

REPORT INFORMATION
  Report Type: 
  Country: None (occurrence: None)
  Receive Date: 20111111
  Receipt Date: 20111031
  Transmission Date: 20120403
  Serious: Yes (Hospitalization, Other)
  Sender: FDA-Public Use
  Company Number: US-BAYER-2011-050392

PATIENT
  Age: 23 Year
  Sex: Female
  Weight: 75 kg

DRUGS (9)
  1. PROVENTIL [Concomitant]
     Dosage: UNK
     Route: 055
     Dates: start: 20070101
  2. IBUPROFEN [Concomitant]
     Dosage: 1-2 PILLS, PRN
  3. ACETAMINOPHEN [Concomitant]
     Dosage: 2 PILLS, PRN
  4. ASCORBIC ACID [Concomitant]
     Dosage: UNK UNK, PRN
  5. ZYRTEC [Concomitant]
     Dosage: UNK
     Dates: start: 20020101
  6. YAZ [Suspect]
     Indication: CONTRACEPTION
     Dosage: UNK
     Route: 048
     Dates: start: 20050101, end: 20090101
  7. YAZ [Suspect]
     Indication: ACNE
  8. YAZ [Suspect]
     Indication: PREMENSTRUAL SYNDROME
  9. YAZ [Suspect]

REACTIONS (3)
  - PAIN [None]
  - BILIARY DYSKINESIA [None]
  - INJURY [None]
